FAERS Safety Report 6011052-X (Version None)
Quarter: 2008Q4

REPORT INFORMATION
  Report Type: 
  Country: None (occurrence: None)
  Receive Date: 20081217
  Receipt Date: 20081217
  Transmission Date: 20090506
  Serious: No
  Sender: FDA-Public Use
  Company Number: None

PATIENT
  Age: 11 Year
  Sex: Female
  Weight: 46.7205 kg

DRUGS (1)
  1. MIDAZOLAM HCL [Suspect]
     Indication: SEDATIVE THERAPY
     Dosage: 5ML BEDTIME PO
     Route: 048
     Dates: start: 20081214, end: 20081214

REACTIONS (1)
  - DRUG INEFFECTIVE [None]
